FAERS Safety Report 17047726 (Version 1)
Quarter: 2019Q4

REPORT INFORMATION
  Report Type: Spontaneous
  Country: US (occurrence: US)
  Receive Date: 20191018
  Receipt Date: 20191018
  Transmission Date: 20200122
  Serious: Yes (Life-Threatening, Hospitalization)
  Sender: FDA-Public Use
  Company Number: None

PATIENT
  Age: 61 Year
  Sex: Male
  Weight: 109 kg

DRUGS (1)
  1. CEFEPIME [Suspect]
     Active Substance: CEFEPIME HYDROCHLORIDE
     Route: 042
     Dates: start: 20180914, end: 20180915

REACTIONS (10)
  - Vomiting [None]
  - Tachycardia [None]
  - Wheezing [None]
  - Hypotension [None]
  - Dehydration [None]
  - Anaphylactic reaction [None]
  - Rash maculo-papular [None]
  - Acute kidney injury [None]
  - Chills [None]
  - Skin exfoliation [None]

NARRATIVE: CASE EVENT DATE: 20190915
